FAERS Safety Report 20348302 (Version 2)
Quarter: 2024Q1

REPORT INFORMATION
  Report Type: Spontaneous
  Country: US (occurrence: US)
  Receive Date: 20220119
  Receipt Date: 20240318
  Transmission Date: 20240410
  Serious: No
  Sender: FDA-Public Use
  Company Number: US-BIOGEN-2022BI01086323

PATIENT
  Sex: Female

DRUGS (1)
  1. TYSABRI [Suspect]
     Active Substance: NATALIZUMAB
     Indication: Product used for unknown indication
     Route: 050

REACTIONS (4)
  - Secondary progressive multiple sclerosis [Unknown]
  - Fatigue [Unknown]
  - Tremor [Unknown]
  - Depression [Unknown]

NARRATIVE: CASE EVENT DATE: 20230101
